FAERS Safety Report 10466800 (Version 1)
Quarter: 2014Q3

REPORT INFORMATION
  Report Type: Spontaneous
  Country: CA (occurrence: CA)
  Receive Date: 20140922
  Receipt Date: 20140922
  Transmission Date: 20150326
  Serious: Yes (Other)
  Sender: FDA-Public Use
  Company Number: CA-009507513-1409CAN009475

PATIENT
  Age: 43 Year
  Sex: Female
  Weight: 40 kg

DRUGS (3)
  1. EMEND [Suspect]
     Active Substance: APREPITANT
     Dosage: 125 MG, QD: 1 EVERY 1 DAY; THERAPY DURATION REPORTED AS: 3 DAYS
     Route: 048
  2. EMEND [Suspect]
     Active Substance: APREPITANT
     Dosage: 80 MG, QD; 1 EVERY 1 DAY; THERAPY DURATION REPORTED AS: 3 DAYS
     Route: 048
  3. ZOPICLONE [Suspect]
     Active Substance: ZOPICLONE
     Dosage: 7.5 MG, 2 EVERY 1 DAY
     Route: 048

REACTIONS (4)
  - Aspartate aminotransferase increased [Recovered/Resolved]
  - Blood lactate dehydrogenase increased [Recovered/Resolved]
  - Alanine aminotransferase increased [Recovered/Resolved]
  - Blood bilirubin abnormal [Recovered/Resolved]
